FAERS Safety Report 8591786-3 (Version None)
Quarter: 2012Q3

REPORT INFORMATION
  Report Type: 
  Country: None (occurrence: None)
  Receive Date: 20120814
  Receipt Date: 20120808
  Transmission Date: 20120928
  Serious: Yes (Disabling, Other)
  Sender: FDA-Public Use
  Company Number: PHHY2012BR069211

PATIENT
  Sex: Female

DRUGS (1)
  1. EXELON [Suspect]
     Indication: DEMENTIA ALZHEIMER'S TYPE
     Dosage: 2 CAPSULES DAILY

REACTIONS (4)
  - CEREBROVASCULAR ACCIDENT [None]
  - SPEECH DISORDER [None]
  - SCHIZOPHRENIA [None]
  - VOCAL CORD DISORDER [None]
